FAERS Safety Report 24673800 (Version 5)
Quarter: 2025Q3

REPORT INFORMATION
  Report Type: Spontaneous
  Country: EU (occurrence: EU)
  Receive Date: 20241128
  Receipt Date: 20250828
  Transmission Date: 20251020
  Serious: Yes (Hospitalization, Other)
  Sender: CELLTRION
  Company Number: EU-CELLTRION INC.-2024PL028775

PATIENT

DRUGS (76)
  1. ADALIMUMAB [Suspect]
     Active Substance: ADALIMUMAB
     Indication: Psoriasis
     Route: 058
  2. ADALIMUMAB [Suspect]
     Active Substance: ADALIMUMAB
     Route: 065
  3. ADALIMUMAB [Suspect]
     Active Substance: ADALIMUMAB
     Dosage: 40 MG, EVERY 2 WEEKS (40 MG/2 WEEKS); 40 MILLIGRAM; PATIENT ROA: SUBCUTANEOUS 40 MG (40 MG/2 WEEKS);
     Route: 065
  4. ADALIMUMAB [Suspect]
     Active Substance: ADALIMUMAB
     Dosage: 20 MILLIGRAM, Q2WK
     Route: 048
  5. ADALIMUMAB [Suspect]
     Active Substance: ADALIMUMAB
     Dosage: 20 MG, WEEKLY (QW); ADDITIONAL INFORMATION ON DRUG: DOSAGE1: UNIT=NOT AVAILABLE DOSAGE2: UNIT=NOT AV
     Route: 048
  6. ADALIMUMAB [Suspect]
     Active Substance: ADALIMUMAB
     Dosage: 20 MG, WEEKLY (QW); ADDITIONAL INFORMATION ON DRUG: DOSAGE1: UNIT=NOT AVAILABLE DOSAGE2: UNIT=NOT AV
     Route: 048
  7. ADALIMUMAB [Suspect]
     Active Substance: ADALIMUMAB
     Dosage: 40 MG, EVERY 2 WEEKS (ADDITIONAL INFORMATION ON DRUG: DOSAGE1: UNIT=NOT AVAILABLE DOSAGE2: UNIT=NOT
     Route: 065
  8. ADALIMUMAB [Suspect]
     Active Substance: ADALIMUMAB
     Dosage: 40 MG (40 MG/2 WEEKS)
     Route: 065
  9. ADALIMUMAB [Suspect]
     Active Substance: ADALIMUMAB
     Dosage: 40 MG, BIW
     Route: 065
  10. ADALIMUMAB [Suspect]
     Active Substance: ADALIMUMAB
     Dosage: 80 MG, QW, (0 MG (40MG/2WEEKS) : 80 MG, WEEKLY (40 MG/2 WEEKS)
     Route: 065
  11. ADALIMUMAB [Suspect]
     Active Substance: ADALIMUMAB
     Dosage: 80 MG, QW, (40 MG, BIW) ; 80 MG, WEEKLY (40 MG, BIW)
     Route: 065
  12. ADALIMUMAB [Suspect]
     Active Substance: ADALIMUMAB
     Dosage: 80 MG, QW, (40 MG (40MG/2 WEEKS)
     Route: 065
  13. ADALIMUMAB [Suspect]
     Active Substance: ADALIMUMAB
     Route: 065
  14. ADALIMUMAB [Suspect]
     Active Substance: ADALIMUMAB
     Dosage: 40 MG, BIW, 80 MG, QW, (40 MG (40 MG /2 WEEKS) ;
     Route: 065
  15. ADALIMUMAB [Suspect]
     Active Substance: ADALIMUMAB
  16. ADALIMUMAB [Suspect]
     Active Substance: ADALIMUMAB
     Dosage: 80 MG, QW, (40 MG (40 MG/2 WEEKS)
     Route: 058
  17. ADALIMUMAB [Suspect]
     Active Substance: ADALIMUMAB
     Dosage: 20 MG, WEEKLY (QW)
     Route: 058
  18. ADALIMUMAB [Suspect]
     Active Substance: ADALIMUMAB
     Dosage: 20 MG, WEEKLY (QW)
     Route: 058
  19. INFLIXIMAB [Suspect]
     Active Substance: INFLIXIMAB
     Indication: Product used for unknown indication
     Route: 065
  20. INFLIXIMAB [Suspect]
     Active Substance: INFLIXIMAB
     Route: 058
  21. INFLIXIMAB [Suspect]
     Active Substance: INFLIXIMAB
     Indication: Product used for unknown indication
     Route: 042
  22. USTEKINUMAB [Suspect]
     Active Substance: USTEKINUMAB
     Indication: Product used for unknown indication
     Route: 065
  23. METHOTREXATE [Suspect]
     Active Substance: METHOTREXATE
     Indication: Psoriasis
     Dosage: 20 MG, WEEKLY (QW); PATIENT ROA: ORAL 20 MG, QW ; 20 MG, WEEKLY
     Route: 048
  24. METHOTREXATE [Suspect]
     Active Substance: METHOTREXATE
     Dosage: 20MG, QW
     Route: 065
  25. METHOTREXATE [Suspect]
     Active Substance: METHOTREXATE
     Dosage: 20 MG, WEEKLY (QW); 20 MG, QW, WEEKLY (QWK) ; 20 MG, WEEKLY
     Route: 048
  26. METHOTREXATE [Suspect]
     Active Substance: METHOTREXATE
     Dosage: 20 MG, WEEKLY (QW); 20 MG, WEEKLY (QWK); 20 MG, QW, WEEKLY (QWK) ; 20 MG, WEEKLY
     Route: 048
  27. METHOTREXATE [Suspect]
     Active Substance: METHOTREXATE
     Dosage: 20 MG, WEEKLY (QW); 20 MG, WEEKLY (QWK); 20 MG, QW, WEEKLY (QWK) ; 20 MG, WEEKLY
     Route: 065
  28. METHOTREXATE [Suspect]
     Active Substance: METHOTREXATE
     Dosage: 20 MG, QW
     Route: 065
  29. METHOTREXATE [Suspect]
     Active Substance: METHOTREXATE
     Dosage: 20 MG, QW
     Route: 048
  30. METHOTREXATE [Suspect]
     Active Substance: METHOTREXATE
     Dosage: 20 MG, QW
     Route: 048
  31. METHOTREXATE [Suspect]
     Active Substance: METHOTREXATE
     Dosage: 20 MG, QW
     Route: 048
  32. METHOTREXATE [Suspect]
     Active Substance: METHOTREXATE
     Dosage: 20 MG, QW, WEEKLY (QWK), ROUTE: OTHERS
  33. METHOTREXATE [Suspect]
     Active Substance: METHOTREXATE
     Dosage: 20 MG, QW, WEEKLY (QWK), ROUTE: OTHERS
  34. ACITRETIN [Suspect]
     Active Substance: ACITRETIN
     Indication: Psoriasis
     Route: 065
  35. ACITRETIN [Suspect]
     Active Substance: ACITRETIN
     Route: 065
     Dates: start: 201102
  36. ACITRETIN [Suspect]
     Active Substance: ACITRETIN
     Dosage: 0.5 MG/KG, 1/WEEK
     Route: 065
     Dates: start: 201102
  37. ACITRETIN [Suspect]
     Active Substance: ACITRETIN
     Route: 065
  38. ACITRETIN [Suspect]
     Active Substance: ACITRETIN
     Dosage: 0.5 MG/KG, BIW (0.5 MILLIGRAM/KILOGRAM (0.5 MG /KG B.W)), BIW
     Route: 065
  39. ACITRETIN [Suspect]
     Active Substance: ACITRETIN
     Dosage: 0.5 MG/KG, BIW (0.5 MILLIGRAM/KILOGRAM (0.5 MG /KG B.W)), BIW
     Route: 065
  40. ACITRETIN [Suspect]
     Active Substance: ACITRETIN
     Dosage: 1 MG/KG, QW, (0.5 MG/KG, BIW (0.5 MILLIGRAM /KILOGRAM (0.5 MG /KG B.W)), BIW)NK : 1 MG/KG, WEEKLY (0
     Route: 065
  41. ACITRETIN [Suspect]
     Active Substance: ACITRETIN
     Route: 065
     Dates: start: 201102
  42. ACITRETIN [Suspect]
     Active Substance: ACITRETIN
     Route: 065
  43. ACITRETIN [Suspect]
     Active Substance: ACITRETIN
     Dosage: 1 MG/KG, WEEKLY (0.5 MG, 2X/WEEK)
     Route: 065
  44. ACITRETIN [Suspect]
     Active Substance: ACITRETIN
     Dates: start: 201102, end: 2013
  45. ACITRETIN [Suspect]
     Active Substance: ACITRETIN
     Dosage: DOSE: 0.5 MG/KG B.W
  46. ETANERCEPT [Suspect]
     Active Substance: ETANERCEPT
     Indication: Product used for unknown indication
     Route: 065
  47. ETANERCEPT [Suspect]
     Active Substance: ETANERCEPT
     Route: 065
  48. ETANERCEPT [Suspect]
     Active Substance: ETANERCEPT
     Route: 065
     Dates: start: 201304
  49. ETANERCEPT [Suspect]
     Active Substance: ETANERCEPT
     Route: 065
  50. SECUKINUMAB [Suspect]
     Active Substance: SECUKINUMAB
     Indication: Product used for unknown indication
     Route: 065
  51. IXEKIZUMAB [Suspect]
     Active Substance: IXEKIZUMAB
     Indication: Product used for unknown indication
     Route: 065
  52. IXEKIZUMAB [Suspect]
     Active Substance: IXEKIZUMAB
     Route: 065
  53. BIMEKIZUMAB [Suspect]
     Active Substance: BIMEKIZUMAB
     Indication: Product used for unknown indication
     Route: 065
  54. BIMEKIZUMAB [Suspect]
     Active Substance: BIMEKIZUMAB
     Route: 065
  55. GUSELKUMAB [Suspect]
     Active Substance: GUSELKUMAB
     Indication: Product used for unknown indication
     Route: 065
  56. GUSELKUMAB [Suspect]
     Active Substance: GUSELKUMAB
     Route: 065
  57. GUSELKUMAB [Suspect]
     Active Substance: GUSELKUMAB
     Route: 058
  58. GUSELKUMAB [Suspect]
     Active Substance: GUSELKUMAB
     Route: 058
  59. RISANKIZUMAB [Suspect]
     Active Substance: RISANKIZUMAB
     Indication: Product used for unknown indication
     Route: 065
  60. RISANKIZUMAB [Suspect]
     Active Substance: RISANKIZUMAB
     Route: 065
  61. RISANKIZUMAB [Suspect]
     Active Substance: RISANKIZUMAB
     Route: 058
  62. TILDRAKIZUMAB [Suspect]
     Active Substance: TILDRAKIZUMAB
     Indication: Product used for unknown indication
     Route: 065
  63. TILDRAKIZUMAB [Suspect]
     Active Substance: TILDRAKIZUMAB
     Route: 065
  64. CERTOLIZUMAB PEGOL [Suspect]
     Active Substance: CERTOLIZUMAB PEGOL
     Indication: Product used for unknown indication
     Route: 065
  65. CERTOLIZUMAB PEGOL [Suspect]
     Active Substance: CERTOLIZUMAB PEGOL
     Route: 065
  66. USTEKINUMAB [Suspect]
     Active Substance: USTEKINUMAB
     Indication: Product used for unknown indication
     Route: 065
  67. STELARA [Suspect]
     Active Substance: USTEKINUMAB
     Indication: Product used for unknown indication
     Route: 058
  68. REMICADE [Suspect]
     Active Substance: INFLIXIMAB
     Indication: Product used for unknown indication
     Route: 041
  69. REMICADE [Suspect]
     Active Substance: INFLIXIMAB
     Route: 042
  70. REMICADE [Suspect]
     Active Substance: INFLIXIMAB
     Route: 042
  71. TREMFYA [Suspect]
     Active Substance: GUSELKUMAB
     Indication: Product used for unknown indication
     Route: 058
  72. TREMFYA [Suspect]
     Active Substance: GUSELKUMAB
     Route: 058
  73. TREMFYA [Suspect]
     Active Substance: GUSELKUMAB
  74. SKYRIZI [Suspect]
     Active Substance: RISANKIZUMAB-RZAA
     Indication: Product used for unknown indication
     Route: 058
  75. WEZLANA [Suspect]
     Active Substance: USTEKINUMAB-AUUB
     Indication: Product used for unknown indication
     Route: 065
  76. WEZLANA [Suspect]
     Active Substance: USTEKINUMAB-AUUB

REACTIONS (8)
  - Glaucomatocyclitic crises [Unknown]
  - Meningitis aseptic [Recovered/Resolved]
  - Condition aggravated [Unknown]
  - Psoriasis [Unknown]
  - Drug ineffective [Unknown]
  - Intentional product use issue [Unknown]
  - Intentional product use issue [Unknown]
  - Underdose [Unknown]
